FAERS Safety Report 11658371 (Version 1)
Quarter: 2015Q4

REPORT INFORMATION
  Report Type: Spontaneous
  Country: US (occurrence: US)
  Receive Date: 20151026
  Receipt Date: 20151026
  Transmission Date: 20160304
  Serious: No
  Sender: FDA-Public Use
  Company Number: US-009507513-1510USA010841

PATIENT
  Age: 68 Year
  Sex: Female

DRUGS (5)
  1. ZETIA [Concomitant]
     Active Substance: EZETIMIBE
     Route: 048
  2. SYNTHROID [Concomitant]
     Active Substance: LEVOTHYROXINE SODIUM
  3. JANUVIA [Suspect]
     Active Substance: SITAGLIPTIN PHOSPHATE
     Indication: DIABETES MELLITUS
     Dosage: ONE 100 MG TABLET DAILY
     Route: 048
     Dates: start: 20151014
  4. LOSARTAN POTASSIUM TABLETS [Concomitant]
     Active Substance: LOSARTAN POTASSIUM
  5. ENBREL [Concomitant]
     Active Substance: ETANERCEPT

REACTIONS (4)
  - Dry mouth [Unknown]
  - Dysgeusia [Unknown]
  - Hunger [Unknown]
  - Headache [Unknown]

NARRATIVE: CASE EVENT DATE: 20151014
